FAERS Safety Report 16046861 (Version 2)
Quarter: 2019Q1

REPORT INFORMATION
  Report Type: Spontaneous
  Country: US (occurrence: US)
  Receive Date: 20190307
  Receipt Date: 20190312
  Transmission Date: 20190418
  Serious: Yes (Other)
  Sender: FDA-Public Use
  Company Number: US-PFIZER INC-2019089748

PATIENT
  Age: 75 Year
  Sex: Male
  Weight: 70.31 kg

DRUGS (5)
  1. GABAPENTIN. [Suspect]
     Active Substance: GABAPENTIN
     Dosage: UNK (SUBSEQUENTLY DOWN BY 100 MG AT A TIME DOWN TO 300 MG)
     Dates: end: 20190226
  2. GABAPENTIN. [Suspect]
     Active Substance: GABAPENTIN
     Dosage: 400 MG, 2X/DAY
     Route: 048
  3. GABAPENTIN. [Suspect]
     Active Substance: GABAPENTIN
     Indication: DIABETIC NEUROPATHY
     Dosage: 300 MG, 1X/DAY
     Route: 048
  4. GABAPENTIN. [Suspect]
     Active Substance: GABAPENTIN
     Dosage: 300 MG, 2X/DAY
     Route: 048
  5. GABAPENTIN. [Suspect]
     Active Substance: GABAPENTIN
     Dosage: 600 MG, DAILY

REACTIONS (6)
  - Drug effect incomplete [Unknown]
  - Blood pressure increased [Recovered/Resolved]
  - Paraesthesia [Unknown]
  - Weight decreased [Not Recovered/Not Resolved]
  - Burning sensation [Unknown]
  - Product use in unapproved indication [Unknown]
